FAERS Safety Report 5055972-1 (Version None)
Quarter: 2006Q3

REPORT INFORMATION
  Report Type: 
  Country: None (occurrence: None)
  Receive Date: 20060714
  Receipt Date: 20060706
  Transmission Date: 20061208
  Serious: Yes (Other)
  Sender: FDA-Public Use
  Company Number: 226268

PATIENT
  Age: 67 Year
  Sex: Female

DRUGS (3)
  1. HERCEPTIN [Suspect]
     Indication: BREAST CANCER
     Dosage: 530 MG
     Dates: start: 20060530
  2. AROMASIN [Concomitant]
  3. FEMARA [Concomitant]

REACTIONS (5)
  - ANAPHYLACTIC REACTION [None]
  - CHILLS [None]
  - HYPOTENSION [None]
  - OXYGEN SATURATION DECREASED [None]
  - TACHYCARDIA [None]
